FAERS Safety Report 4914069-9 (Version None)
Quarter: 2006Q1

REPORT INFORMATION
  Report Type: 
  Country: None (occurrence: None)
  Receive Date: 20060213
  Receipt Date: 20060201
  Transmission Date: 20060701
  Serious: Yes (Death, Hospitalization)
  Sender: FDA-Public Use
  Company Number: 2006017082

PATIENT
  Sex: Female

DRUGS (10)
  1. PREDNISOLONE [Suspect]
     Indication: ILL-DEFINED DISORDER
  2. ASPIRIN [Suspect]
     Indication: ILL-DEFINED DISORDER
     Dosage: 75 MG
  3. SPIRIVA [Suspect]
     Indication: CHRONIC OBSTRUCTIVE PULMONARY DISEASE
     Dosage: 18 MCG, INHALATION
     Route: 055
  4. VENTOLIN [Suspect]
     Indication: ILL-DEFINED DISORDER
     Dosage: 2.5 MG, INHALATION
     Route: 055
  5. FLUTICASONE PROPIONATE [Suspect]
     Indication: ILL-DEFINED DISORDER
     Dosage: INHALATION
     Route: 055
  6. CANESTEN (CLOTRIMAZOLE) [Suspect]
     Indication: ILL-DEFINED DISORDER
  7. GAVISCON [Concomitant]
  8. PANTOPRAZOLE SODIUM [Concomitant]
  9. RAMIPRIL [Concomitant]
  10. CALCICHEW-D3 (CALCIUM CARBONATE, COLECALCIFEROL) [Concomitant]

REACTIONS (3)
  - CARDIAC FAILURE [None]
  - PANCREATITIS ACUTE [None]
  - PERITONITIS [None]
